FAERS Safety Report 19807055 (Version 1)
Quarter: 2021Q3

REPORT INFORMATION
  Report Type: Report from Study
  Country: US (occurrence: US)
  Receive Date: 20210909
  Receipt Date: 20210909
  Transmission Date: 20211014
  Serious: Yes (Other)
  Sender: FDA-Public Use
  Company Number: US-ALS-000399

PATIENT
  Age: 47 Year
  Sex: Male

DRUGS (6)
  1. DULOXETINE. [Suspect]
     Active Substance: DULOXETINE
     Indication: BIPOLAR DISORDER
     Dosage: 120 MG
     Route: 065
  2. TOPIRAMATE. [Suspect]
     Active Substance: TOPIRAMATE
     Indication: BIPOLAR DISORDER
     Dosage: 25 MG
     Route: 065
  3. QUETIAPINE. [Suspect]
     Active Substance: QUETIAPINE
     Indication: BIPOLAR DISORDER
     Dosage: 300 MG
     Route: 065
  4. DEXAMFETAMINE [Suspect]
     Active Substance: DEXTROAMPHETAMINE
     Indication: BIPOLAR DISORDER
     Dosage: 20 MG
     Route: 065
  5. VALPROIC ACID. [Suspect]
     Active Substance: VALPROIC ACID
     Indication: BIPOLAR DISORDER
     Dosage: 2000 MG
     Route: 065
  6. AMFETAMINE [Suspect]
     Active Substance: AMPHETAMINE
     Indication: BIPOLAR DISORDER
     Dosage: 20 MG
     Route: 065

REACTIONS (6)
  - Restless legs syndrome [Unknown]
  - Cognitive disorder [Unknown]
  - Weight increased [Unknown]
  - Drug ineffective [Unknown]
  - Disease recurrence [Unknown]
  - Alopecia [Unknown]
